FAERS Safety Report 4991325-X (Version None)
Quarter: 2006Q2

REPORT INFORMATION
  Report Type: 
  Country: None (occurrence: None)
  Receive Date: 20060501
  Receipt Date: 20060501
  Transmission Date: 20061013
  Serious: Yes (Hospitalization)
  Sender: FDA-Public Use
  Company Number: None

PATIENT
  Sex: Male
  Weight: 106 kg

DRUGS (3)
  1. CARBOPLATIN [Suspect]
     Indication: LUNG ADENOCARCINOMA
     Dosage: 570 MG
     Dates: start: 20060404, end: 20060404
  2. CARBOPLATIN [Suspect]
     Indication: LUNG ADENOCARCINOMA
     Dosage: 570 MG
     Dates: start: 20060425
  3. ALIMTA [Suspect]
     Dosage: 1100 MG
     Dates: start: 20060404, end: 20060404

REACTIONS (3)
  - ATRIAL FIBRILLATION [None]
  - DEVICE MIGRATION [None]
  - HYPOTHYROIDISM [None]
